FAERS Safety Report 14881090 (Version 1)
Quarter: 2018Q2

REPORT INFORMATION
  Report Type: Spontaneous
  Country: US (occurrence: US)
  Receive Date: 20180425
  Receipt Date: 20180425
  Transmission Date: 20180711
  Serious: Yes (Other)
  Sender: FDA-Public Use
  Company Number: None

PATIENT
  Age: 20 Year
  Sex: Male
  Weight: 97.65 kg

DRUGS (12)
  1. LEVETIRACETAM. [Concomitant]
     Active Substance: LEVETIRACETAM
  2. LINZESS [Concomitant]
     Active Substance: LINACLOTIDE
  3. FISH OIL [Concomitant]
     Active Substance: FISH OIL
  4. SINGULAIR [Suspect]
     Active Substance: MONTELUKAST SODIUM
     Indication: HYPERSENSITIVITY
     Dosage: FREQUENCY: AT BEDTIME
     Route: 048
     Dates: start: 20180401, end: 20180410
  5. SINGULAIR [Suspect]
     Active Substance: MONTELUKAST SODIUM
     Indication: ASTHMA
     Dosage: FREQUENCY: AT BEDTIME
     Route: 048
     Dates: start: 20180401, end: 20180410
  6. CREAMS FOR ECZEMA [Concomitant]
  7. CRANBERRY EXTRACT [Concomitant]
     Active Substance: CRANBERRY JUICE
  8. VITAMIN B6 [Concomitant]
     Active Substance: PYRIDOXINE HYDROCHLORIDE
  9. MULTI VITAMIN [Concomitant]
     Active Substance: VITAMINS
  10. PENTRAPOZOLE [Concomitant]
  11. VITAMIN B12 [Concomitant]
     Active Substance: CYANOCOBALAMIN
  12. VITAMIN D3 [Concomitant]
     Active Substance: CHOLECALCIFEROL

REACTIONS (1)
  - Seizure [None]

NARRATIVE: CASE EVENT DATE: 20180409
